FAERS Safety Report 9279341 (Version 1)
Quarter: 2013Q2

REPORT INFORMATION
  Report Type: Spontaneous
  Country: DE (occurrence: DE)
  Receive Date: 20130508
  Receipt Date: 20130508
  Transmission Date: 20140414
  Serious: Yes (Hospitalization)
  Sender: FDA-Public Use
  Company Number: DE-ELI_LILLY_AND_COMPANY-DE201305000692

PATIENT
  Sex: Female

DRUGS (6)
  1. FORSTEO [Suspect]
     Indication: OSTEOPOROSIS
     Dosage: UNK
     Route: 058
     Dates: start: 201103
  2. SORTIS [Concomitant]
  3. MICARDISPLUS [Concomitant]
  4. THYRONAJOD [Concomitant]
  5. VIGANTOLETTEN [Concomitant]
  6. CALCIUM [Concomitant]

REACTIONS (2)
  - Sepsis [Recovered/Resolved]
  - Back pain [Recovered/Resolved]
